FAERS Safety Report 24047065 (Version 1)
Quarter: 2024Q3

REPORT INFORMATION
  Report Type: Spontaneous
  Country: US (occurrence: US)
  Receive Date: 20240703
  Receipt Date: 20240703
  Transmission Date: 20241017
  Serious: Yes (Other)
  Sender: NOVARTIS
  Company Number: US-002147023-NVSC2024US136553

PATIENT
  Age: 9 Year
  Sex: Female

DRUGS (1)
  1. KYMRIAH [Suspect]
     Active Substance: TISAGENLECLEUCEL
     Indication: B-cell type acute leukaemia
     Dosage: UNK, ONCE/SINGLE (1.7X10^6 CD3 CELLS)
     Route: 042
     Dates: start: 20240618, end: 20240618

REACTIONS (1)
  - Cytopenia [Not Recovered/Not Resolved]
